FAERS Safety Report 6277653-9 (Version None)
Quarter: 2009Q3

REPORT INFORMATION
  Report Type: 
  Country: None (occurrence: None)
  Receive Date: 20090722
  Receipt Date: 20090713
  Transmission Date: 20100115
  Serious: Yes (Hospitalization)
  Sender: FDA-Public Use
  Company Number: NZ-PURDUE-USA-2009-0039087

PATIENT
  Sex: Female

DRUGS (5)
  1. OXYCODONE HYDROCHLORIDE [Suspect]
     Indication: DRUG USE FOR UNKNOWN INDICATION
     Dosage: 220 MG, DAILY
     Route: 048
     Dates: start: 20080526, end: 20080526
  2. SINEMET [Concomitant]
  3. CILAZAPRIL [Concomitant]
  4. OLANZAPINE [Concomitant]
  5. VALPROATE SODIUM [Concomitant]

REACTIONS (5)
  - CONVULSION [None]
  - DEPRESSED LEVEL OF CONSCIOUSNESS [None]
  - HYPERKALAEMIA [None]
  - HYPOTENSION [None]
  - MEDICATION ERROR [None]
